FAERS Safety Report 16299595 (Version 2)
Quarter: 2019Q2

REPORT INFORMATION
  Report Type: Spontaneous
  Country: PE (occurrence: PE)
  Receive Date: 20190510
  Receipt Date: 20190607
  Transmission Date: 20190711
  Serious: Yes (Hospitalization, Other)
  Sender: FDA-Public Use
  Company Number: PE-GLAXOSMITHKLINE-PE2019GSK080906

PATIENT
  Age: 21 Year
  Sex: Male

DRUGS (6)
  1. EFAVIRENZ. [Suspect]
     Active Substance: EFAVIRENZ
     Indication: HIV INFECTION
     Dosage: UNK
  2. PREDNISOLONE. [Concomitant]
     Active Substance: PREDNISOLONE
     Indication: CONJUNCTIVITIS
     Dosage: UNK
  3. TIMOLOL. [Concomitant]
     Active Substance: TIMOLOL
     Indication: CONJUNCTIVITIS
     Dosage: UNK
  4. LAMIVUDINE. [Suspect]
     Active Substance: LAMIVUDINE
     Indication: HIV INFECTION
     Dosage: UNK
  5. TENOFOVIR DISOPROXIL FUMARATE. [Suspect]
     Active Substance: TENOFOVIR DISOPROXIL FUMARATE
     Indication: HIV INFECTION
     Dosage: UNK
  6. DORZOLAMIDE [Concomitant]
     Active Substance: DORZOLAMIDE
     Indication: CONJUNCTIVITIS
     Dosage: UNK

REACTIONS (31)
  - Neurosyphilis [Recovering/Resolving]
  - Madarosis [Recovering/Resolving]
  - Skin exfoliation [Recovering/Resolving]
  - CSF test abnormal [Recovering/Resolving]
  - Epidermal necrosis [Recovering/Resolving]
  - Vision blurred [Recovering/Resolving]
  - Scrotal ulcer [Recovering/Resolving]
  - Secondary syphilis [Recovering/Resolving]
  - CSF glucose decreased [Recovering/Resolving]
  - Lacrimation increased [Recovering/Resolving]
  - Visual acuity reduced [Recovering/Resolving]
  - Rash papular [Recovering/Resolving]
  - Parakeratosis [Recovering/Resolving]
  - Eczema [Recovering/Resolving]
  - Capillary disorder [Recovering/Resolving]
  - Lymphocytic infiltration [Recovering/Resolving]
  - Visual field defect [Recovering/Resolving]
  - Skin hyperpigmentation [Recovering/Resolving]
  - Penile ulceration [Recovering/Resolving]
  - Lichenoid keratosis [Unknown]
  - Disease recurrence [Recovering/Resolving]
  - Alopecia areata [Recovering/Resolving]
  - Visual impairment [Recovering/Resolving]
  - Penile exfoliation [Recovering/Resolving]
  - Immune reconstitution inflammatory syndrome [Recovering/Resolving]
  - Uveitis [Recovering/Resolving]
  - Periorbital oedema [Recovering/Resolving]
  - Skin plaque [Recovering/Resolving]
  - Skin discolouration [Recovering/Resolving]
  - Headache [Recovering/Resolving]
  - Melanoderma [Recovering/Resolving]
